FAERS Safety Report 6057582-6 (Version None)
Quarter: 2009Q1

REPORT INFORMATION
  Report Type: 
  Country: None (occurrence: None)
  Receive Date: 20090127
  Receipt Date: 20090127
  Transmission Date: 20090719
  Serious: No
  Sender: FDA-Public Use
  Company Number: None

PATIENT
  Sex: Male

DRUGS (1)
  1. HALOPERIDOL 5MG [Suspect]
     Dosage: 5MG QAM AND 10MG QHS PO
     Route: 048
     Dates: start: 20081014, end: 20090123

REACTIONS (1)
  - TREMOR [None]
